FAERS Safety Report 19831232 (Version 1)
Quarter: 2021Q3

REPORT INFORMATION
  Report Type: Report from Study
  Country: US (occurrence: US)
  Receive Date: 20210915
  Receipt Date: 20210915
  Transmission Date: 20211014
  Serious: Yes (Hospitalization)
  Sender: FDA-Public Use
  Company Number: US-ROCHE-2874801

PATIENT
  Age: 60 Year
  Sex: Male
  Weight: 99 kg

DRUGS (35)
  1. VITAMIN D3 [Concomitant]
     Active Substance: CHOLECALCIFEROL
     Indication: VITAMIN D DEFICIENCY
     Dosage: DOSE 500 U
     Route: 048
     Dates: start: 2011
  2. IVERMECTIN. [Concomitant]
     Active Substance: IVERMECTIN
     Indication: COVID-19 PROPHYLAXIS
     Route: 048
     Dates: start: 20210210
  3. CHLORDIAZEPOXIDE. [Concomitant]
     Active Substance: CHLORDIAZEPOXIDE
     Route: 048
     Dates: start: 20210319
  4. VESICARE [Concomitant]
     Active Substance: SOLIFENACIN SUCCINATE
     Indication: HYPERTONIC BLADDER
     Route: 048
     Dates: start: 20210318
  5. POTASSIUM CHLORIDE. [Concomitant]
     Active Substance: POTASSIUM CHLORIDE
     Dosage: 40 OTHER
     Route: 048
     Dates: start: 20210629, end: 20210702
  6. ACETAMINOPHEN. [Concomitant]
     Active Substance: ACETAMINOPHEN
     Route: 048
     Dates: start: 20210702, end: 20210705
  7. OCRELIZUMAB. [Suspect]
     Active Substance: OCRELIZUMAB
     Dosage: START DATE OF MOST RECENT DOSE OF STUDY DRUG PRIOR TO ADVERSE EVENT (AE) OR SERIOUS AE (SAE).
     Route: 042
     Dates: start: 20201229, end: 20201229
  8. ROPINIROLE. [Concomitant]
     Active Substance: ROPINIROLE
     Indication: MUSCLE SPASMS
     Route: 048
     Dates: start: 202007
  9. NALOXONE [Concomitant]
     Active Substance: NALOXONE
     Route: 042
     Dates: start: 20210629, end: 20210702
  10. SODIUM CHLORIDE. [Concomitant]
     Active Substance: SODIUM CHLORIDE
     Route: 042
     Dates: start: 20210629, end: 20210702
  11. ACETAMINOPHEN. [Concomitant]
     Active Substance: ACETAMINOPHEN
     Indication: PAIN
     Route: 048
     Dates: start: 20210626, end: 20210626
  12. OCRELIZUMAB. [Suspect]
     Active Substance: OCRELIZUMAB
     Indication: PRIMARY PROGRESSIVE MULTIPLE SCLEROSIS
     Route: 042
     Dates: start: 20190812, end: 20190812
  13. TURMERIC [Concomitant]
     Active Substance: HERBALS\TURMERIC
     Route: 048
     Dates: start: 2018
  14. PROVIGIL [Concomitant]
     Active Substance: MODAFINIL
     Indication: FATIGUE
     Route: 048
     Dates: start: 2018
  15. VALIUM [Concomitant]
     Active Substance: DIAZEPAM
     Indication: SPINAL PAIN
     Route: 048
     Dates: start: 2018
  16. MELATONIN [Concomitant]
     Active Substance: MELATONIN
  17. VASOTEC [ENALAPRILAT] [Concomitant]
     Active Substance: ENALAPRILAT
     Indication: HYPERTENSION
     Route: 058
     Dates: start: 20210629, end: 20210702
  18. VITAMIN C [Concomitant]
     Active Substance: ASCORBIC ACID
     Route: 048
     Dates: start: 2015
  19. SUPER B COMPLEX [Concomitant]
     Active Substance: CYANOCOBALAMIN\DEXPANTHENOL\NIACINAMIDE\PYRIDOXINE HYDROCHLORIDE\RIBOFLAVIN 5^-PHOSPHATE SODIUM\THIAMINE HYDROCHLORIDE\VITAMIN B COMPLEX
     Route: 048
     Dates: start: 2015
  20. ONDANSETRON [Concomitant]
     Active Substance: ONDANSETRON
     Indication: NAUSEA
     Route: 042
     Dates: start: 20210629, end: 20210702
  21. SAW PALMETTO [Concomitant]
     Active Substance: HERBALS\SAW PALMETTO
     Route: 048
     Dates: start: 2016
  22. PUMPKIN SEED [Concomitant]
     Active Substance: PUMPKIN SEED
     Route: 048
     Dates: start: 2018
  23. GABAPENTIN. [Concomitant]
     Active Substance: GABAPENTIN
     Indication: PAIN
     Route: 048
     Dates: start: 20210318
  24. ONDANSETRON ODT [Concomitant]
     Active Substance: ONDANSETRON
     Indication: NAUSEA
     Route: 048
     Dates: start: 20210629, end: 20210702
  25. HYDROCODONE [Concomitant]
     Active Substance: HYDROCODONE
     Indication: PAIN
     Dosage: 5 UNKNOWN
     Route: 048
     Dates: start: 20210626, end: 20210629
  26. OMEGA 3 FISH OILS [Concomitant]
     Active Substance: OMEGA-3 FATTY ACIDS
     Route: 048
     Dates: start: 2016
  27. PANTOPRAZOLE [Concomitant]
     Active Substance: PANTOPRAZOLE
     Indication: GASTROOESOPHAGEAL REFLUX DISEASE
     Route: 048
     Dates: start: 20210318
  28. SODIUM CHLORIDE. [Concomitant]
     Active Substance: SODIUM CHLORIDE
     Indication: FLUSHING
     Route: 042
     Dates: start: 20210629, end: 20210702
  29. LOVENOX [Concomitant]
     Active Substance: ENOXAPARIN SODIUM
     Route: 058
     Dates: start: 20210629, end: 20210702
  30. DHEA [Concomitant]
     Active Substance: PRASTERONE
     Route: 048
     Dates: start: 2016
  31. CLOMID [Concomitant]
     Active Substance: CLOMIPHENE CITRATE
     Route: 048
     Dates: start: 20210318
  32. CYCLOBENZAPRINE. [Concomitant]
     Active Substance: CYCLOBENZAPRINE
     Indication: SPINAL PAIN
     Route: 048
     Dates: start: 20210318
  33. POTASSIUM CHLORIDE. [Concomitant]
     Active Substance: POTASSIUM CHLORIDE
     Dosage: 10 OTHER
     Route: 042
     Dates: start: 20210629, end: 20210702
  34. PANTOPRAZOLE [Concomitant]
     Active Substance: PANTOPRAZOLE
     Route: 048
     Dates: start: 20210702
  35. OXYCODONE [Concomitant]
     Active Substance: OXYCODONE
     Indication: PAIN
     Route: 048
     Dates: start: 20210702, end: 20210705

REACTIONS (1)
  - Colitis [Recovered/Resolved]

NARRATIVE: CASE EVENT DATE: 20210629
